FAERS Safety Report 8536081 (Version 5)
Quarter: 2013Q2

REPORT INFORMATION
  Report Type: Spontaneous
  Country: US (occurrence: US)
  Receive Date: 20120430
  Receipt Date: 20130402
  Transmission Date: 20140414
  Serious: Yes (Hospitalization, Disabling, Other)
  Sender: FDA-Public Use
  Company Number: US-ASTELLAS-2011US007356

PATIENT
  Age: 5 Year
  Sex: Male
  Weight: 42 kg

DRUGS (8)
  1. PROTOPIC [Suspect]
     Indication: ECZEMA
     Dosage: 0.1 %, BID PRN
     Route: 061
     Dates: start: 2004, end: 2005
  2. PROTOPIC [Suspect]
     Indication: DERMATITIS ATOPIC
     Dosage: 0.1 %, BID PRN
     Route: 061
     Dates: start: 20090102
  3. PROTOPIC [Suspect]
     Dosage: 0.1 %, BID
     Route: 061
  4. ELIDEL [Interacting]
     Indication: ECZEMA
     Dosage: 1 %, UNKNOWN/D
     Route: 065
  5. ALLEGRA [Concomitant]
     Indication: PRODUCT USED FOR UNKNOWN INDICATION
     Dosage: 30 MG, UNKNOWN/D
     Route: 048
  6. CUTIVATE [Concomitant]
     Indication: DERMATITIS ATOPIC
     Dosage: UNK
     Route: 061
  7. BACTROBAN [Concomitant]
     Indication: DERMATITIS ATOPIC
     Dosage: UNK
     Route: 065
  8. LIDEX [Concomitant]
     Indication: DERMATITIS ATOPIC
     Dosage: UNK
     Route: 061

REACTIONS (59)
  - Off label use [Unknown]
  - Embolism venous [Recovered/Resolved]
  - Autism spectrum disorder [Unknown]
  - Localised intraabdominal fluid collection [Unknown]
  - Tympanic membrane perforation [Unknown]
  - Peritonitis [Recovered/Resolved]
  - Nasal abscess [Recovered/Resolved]
  - Pleural effusion [Recovering/Resolving]
  - Abdominal abscess [Recovered/Resolved]
  - Dysgraphia [Unknown]
  - Fluid retention [Unknown]
  - Constipation [Recovered/Resolved]
  - Constipation [Recovered/Resolved]
  - Burkitt^s lymphoma stage II [Recovered/Resolved]
  - Otitis media acute [Unknown]
  - Gastrooesophageal reflux disease [Unknown]
  - Tooth extraction [Unknown]
  - Splinter [Unknown]
  - Fall [Unknown]
  - Radius fracture [Recovered/Resolved]
  - Obsessive-compulsive disorder [Unknown]
  - Excessive granulation tissue [Recovered/Resolved]
  - Muscle strain [Unknown]
  - Cerumen impaction [Unknown]
  - Synovial cyst [Unknown]
  - Fatigue [Unknown]
  - Orthostatic hypotension [Unknown]
  - Depression [Unknown]
  - Urine output decreased [Recovered/Resolved]
  - Liver disorder [Unknown]
  - Hepatic steatosis [Unknown]
  - Wrist fracture [Unknown]
  - Fall [Unknown]
  - Upper limb fracture [Unknown]
  - Expired drug administered [Unknown]
  - Faecaloma [Unknown]
  - Small intestinal bacterial overgrowth [Recovering/Resolving]
  - Viral infection [Unknown]
  - Pharyngitis streptococcal [Unknown]
  - Upper respiratory tract infection [Unknown]
  - Pneumonia bacterial [Recovered/Resolved]
  - Otitis externa [Unknown]
  - Bronchitis [Unknown]
  - Pharyngitis streptococcal [Unknown]
  - Oropharyngeal pain [Unknown]
  - Abdominal pain upper [Unknown]
  - Upper respiratory tract infection [Unknown]
  - Pneumonia bacterial [Unknown]
  - Pharyngitis streptococcal [Unknown]
  - Tonsillitis [Unknown]
  - Constipation [Unknown]
  - Bronchiolitis [Unknown]
  - Constipation [Unknown]
  - Headache [Unknown]
  - Melanocytic naevus [Unknown]
  - Eczema [Unknown]
  - Lymphadenopathy [Unknown]
  - Cystitis [Unknown]
  - Otitis externa [Unknown]
